FAERS Safety Report 11995931 (Version 3)
Quarter: 2016Q2

REPORT INFORMATION
  Report Type: Spontaneous
  Country: JP (occurrence: JP)
  Receive Date: 20160203
  Receipt Date: 20160512
  Transmission Date: 20160815
  Serious: Yes (Death, Hospitalization)
  Sender: FDA-Public Use
  Company Number: JP-EISAI MEDICAL RESEARCH-EC-2015-013198

PATIENT
  Age: 55 Year
  Sex: Male

DRUGS (1)
  1. LENVIMA [Suspect]
     Active Substance: LENVATINIB
     Indication: ANAPLASTIC THYROID CANCER
     Route: 048
     Dates: start: 20151207, end: 20160127

REACTIONS (3)
  - Malignant neoplasm progression [Fatal]
  - Oesophageal perforation [Not Recovered/Not Resolved]
  - Arterial haemorrhage [Not Recovered/Not Resolved]

NARRATIVE: CASE EVENT DATE: 20151221
